FAERS Safety Report 9445185 (Version 2)
Quarter: 2013Q3

REPORT INFORMATION
  Report Type: Report from Study
  Country: AU (occurrence: AU)
  Receive Date: 20130807
  Receipt Date: 20130823
  Transmission Date: 20140515
  Serious: Yes (Death, Other)
  Sender: FDA-Public Use
  Company Number: AU-MPIJNJ-2013-05855

PATIENT
  Sex: 0

DRUGS (1)
  1. VELCADE [Suspect]
     Indication: AMYLOIDOSIS
     Dosage: 2.6 MG, UNK
     Route: 042
     Dates: start: 20121120, end: 20130510

REACTIONS (3)
  - Respiratory failure [Fatal]
  - Emphysema [Fatal]
  - Off label use [Unknown]
